FAERS Safety Report 5131976-5 (Version None)
Quarter: 2006Q4

REPORT INFORMATION
  Report Type: 
  Country: None (occurrence: None)
  Receive Date: 20061017
  Receipt Date: 20061010
  Transmission Date: 20070319
  Serious: Yes (Death, Other)
  Sender: FDA-Public Use
  Company Number: 163-21880-06100517

PATIENT
  Age: 53 Year
  Sex: Male
  Weight: 131.5431 kg

DRUGS (6)
  1. REVLIMID [Suspect]
     Indication: MYELODYSPLASTIC SYNDROME
     Dosage: 10 MG, 1 IN 1 D, ORAL
     Route: 048
     Dates: start: 20060803, end: 20060811
  2. ASPIRIN [Concomitant]
  3. PREVACID [Concomitant]
  4. BUSPAR [Concomitant]
  5. FOLIC ACID [Concomitant]
  6. OXYCODONE HCL [Concomitant]

REACTIONS (5)
  - DYSPNOEA EXERTIONAL [None]
  - FATIGUE [None]
  - HAEMORRHAGE [None]
  - VESSEL PUNCTURE SITE HAEMATOMA [None]
  - VISUAL DISTURBANCE [None]
